FAERS Safety Report 16981886 (Version 4)
Quarter: 2022Q2

REPORT INFORMATION
  Report Type: Report from Study
  Country: CA (occurrence: None)
  Receive Date: 20191101
  Receipt Date: 20220623
  Transmission Date: 20220721
  Serious: Yes (Disabling, Other)
  Sender: FDA-Public Use
  Company Number: CA-ORION CORPORATION ORION PHARMA-TREX2019-4913

PATIENT
  Age: 50 Year
  Sex: Female

DRUGS (32)
  1. METHOTREXATE [Interacting]
     Active Substance: METHOTREXATE
     Indication: Product used for unknown indication
     Route: 065
  2. AMLODIPINE BESYLATE [Interacting]
     Active Substance: AMLODIPINE BESYLATE
     Indication: Product used for unknown indication
     Route: 065
  3. ATENOLOL [Interacting]
     Active Substance: ATENOLOL
     Indication: Product used for unknown indication
     Route: 048
  4. CYCLOSPORINE [Interacting]
     Active Substance: CYCLOSPORINE
     Indication: Product used for unknown indication
     Route: 065
  5. COSENTYX [Interacting]
     Active Substance: SECUKINUMAB
     Indication: Psoriasis
     Route: 058
  6. COSENTYX [Interacting]
     Active Substance: SECUKINUMAB
     Route: 058
  7. COSENTYX [Interacting]
     Active Substance: SECUKINUMAB
     Route: 058
  8. COSENTYX [Interacting]
     Active Substance: SECUKINUMAB
     Route: 058
  9. COSENTYX [Interacting]
     Active Substance: SECUKINUMAB
     Route: 058
     Dates: start: 20151230, end: 20160127
  10. COSENTYX [Interacting]
     Active Substance: SECUKINUMAB
     Route: 058
     Dates: start: 2017, end: 20180709
  11. COSENTYX [Interacting]
     Active Substance: SECUKINUMAB
     Route: 058
     Dates: start: 20160331
  12. COSENTYX [Interacting]
     Active Substance: SECUKINUMAB
     Route: 058
     Dates: start: 20160527
  13. COSENTYX [Interacting]
     Active Substance: SECUKINUMAB
     Route: 058
     Dates: start: 20160930
  14. COSENTYX [Interacting]
     Active Substance: SECUKINUMAB
     Route: 058
     Dates: start: 20161102
  15. COSENTYX [Interacting]
     Active Substance: SECUKINUMAB
     Route: 058
     Dates: start: 20170621
  16. COSENTYX [Interacting]
     Active Substance: SECUKINUMAB
     Route: 058
     Dates: start: 20171011
  17. COSENTYX [Interacting]
     Active Substance: SECUKINUMAB
     Route: 058
     Dates: start: 20171111
  18. COSENTYX [Interacting]
     Active Substance: SECUKINUMAB
     Route: 058
     Dates: start: 20171211
  19. IRBESARTAN [Interacting]
     Active Substance: IRBESARTAN
     Indication: Product used for unknown indication
     Route: 058
  20. IRBESARTAN [Interacting]
     Active Substance: IRBESARTAN
     Route: 065
  21. TRIAMTERENE [Interacting]
     Active Substance: TRIAMTERENE
     Indication: Product used for unknown indication
     Route: 065
  22. ASPIRIN [Concomitant]
     Active Substance: ASPIRIN
     Route: 065
  23. BETAMETHASONE DIPROPIONATE\CALCIPOTRIENE [Concomitant]
     Active Substance: BETAMETHASONE DIPROPIONATE\CALCIPOTRIENE
     Route: 065
  24. CALCIUM [Concomitant]
     Active Substance: CALCIUM
     Route: 065
  25. COAL TAR [Concomitant]
     Active Substance: COAL TAR
     Route: 061
  26. ERGOCALCIFEROL [Concomitant]
     Active Substance: ERGOCALCIFEROL
     Route: 065
  27. HUMIRA [Concomitant]
     Active Substance: ADALIMUMAB
     Route: 065
  28. METFORMIN HYDROCHLORIDE/ TOLBUTAMIDE [Concomitant]
     Route: 065
  29. OMEGA-3 FATTY ACIDS [Concomitant]
     Active Substance: OMEGA-3 FATTY ACIDS
     Route: 065
  30. PSORALEN [Concomitant]
     Active Substance: PSORALEN
     Route: 065
  31. RABEPRAZOLE SODIUM [Concomitant]
     Active Substance: RABEPRAZOLE SODIUM
     Indication: Abdominal discomfort
     Route: 065
  32. STELARA [Concomitant]
     Active Substance: USTEKINUMAB
     Route: 065
     Dates: start: 201512, end: 201512

REACTIONS (24)
  - Drug interaction [Not Recovered/Not Resolved]
  - Abdominal discomfort [Unknown]
  - Arthralgia [Unknown]
  - Back pain [Unknown]
  - Blood pressure diastolic decreased [Unknown]
  - Depressed mood [Unknown]
  - Fatigue [Unknown]
  - Malaise [Not Recovered/Not Resolved]
  - Pain [Unknown]
  - Pain in extremity [Unknown]
  - Pruritus [Unknown]
  - Diabetic neuropathy [Unknown]
  - Contusion [Recovered/Resolved]
  - Blood pressure increased [Unknown]
  - Dry skin [Unknown]
  - Fall [Unknown]
  - Feeling abnormal [Unknown]
  - Fungal infection [Unknown]
  - General physical health deterioration [Unknown]
  - Hypersomnia [Unknown]
  - Joint range of motion decreased [Unknown]
  - Nasopharyngitis [Unknown]
  - Psoriasis [Not Recovered/Not Resolved]
  - Skin burning sensation [Unknown]

NARRATIVE: CASE EVENT DATE: 20160101
